FAERS Safety Report 24919276 (Version 1)
Quarter: 2025Q1

REPORT INFORMATION
  Report Type: Spontaneous
  Country: US (occurrence: US)
  Receive Date: 20250204
  Receipt Date: 20250204
  Transmission Date: 20250409
  Serious: No
  Sender: TARO
  Company Number: US-TARO PHARMACEUTICALS USA INC.-2024TAR02160

PATIENT

DRUGS (4)
  1. ADAPALENE [Suspect]
     Active Substance: ADAPALENE
     Indication: Acne
     Dosage: OD, AT NIGHT PEA SIZE
     Route: 061
     Dates: start: 20241015, end: 202412
  2. ADAPALENE [Suspect]
     Active Substance: ADAPALENE
     Indication: Dry skin
  3. ADAPALENE [Suspect]
     Active Substance: ADAPALENE
     Indication: Menopause
  4. VITAMINS [Concomitant]
     Active Substance: VITAMINS
     Indication: Product used for unknown indication
     Route: 065

REACTIONS (4)
  - Skin haemorrhage [Recovering/Resolving]
  - Skin exfoliation [Recovering/Resolving]
  - Dry skin [Recovering/Resolving]
  - Pruritus [Recovering/Resolving]

NARRATIVE: CASE EVENT DATE: 20241001
